FAERS Safety Report 11469018 (Version 1)
Quarter: 2015Q3

REPORT INFORMATION
  Report Type: Spontaneous
  Country: US (occurrence: US)
  Receive Date: 20150908
  Receipt Date: 20150908
  Transmission Date: 20151125
  Serious: Yes (Other)
  Sender: FDA-Public Use
  Company Number: US-PFIZER INC-2015290067

PATIENT
  Age: 55 Year
  Sex: Male
  Weight: 54 kg

DRUGS (2)
  1. GABAPENTIN. [Suspect]
     Active Substance: GABAPENTIN
     Indication: DEPRESSION
     Dosage: 100 MG, 3X/DAY
     Route: 048
  2. LAMICTAL [Suspect]
     Active Substance: LAMOTRIGINE
     Dosage: UNK

REACTIONS (4)
  - Pruritus [Unknown]
  - Product use issue [Unknown]
  - Skin exfoliation [Unknown]
  - Skin discolouration [Unknown]
